FAERS Safety Report 10042204 (Version 1)
Quarter: 2014Q1

REPORT INFORMATION
  Report Type: Spontaneous
  Country: US (occurrence: US)
  Receive Date: 20140327
  Receipt Date: 20140327
  Transmission Date: 20141002
  Serious: No
  Sender: FDA-Public Use
  Company Number: US-PFIZER INC-2014086459

PATIENT
  Sex: Female

DRUGS (2)
  1. VENLAFAXINE HCL [Suspect]
     Dosage: 75 MG, UNK
  2. VENLAFAXINE HCL [Suspect]
     Dosage: 150 MG, UNK

REACTIONS (2)
  - Nervousness [Unknown]
  - Paranoia [Unknown]
